FAERS Safety Report 8407312-5 (Version None)
Quarter: 2012Q2

REPORT INFORMATION
  Report Type: 
  Country: None (occurrence: None)
  Receive Date: 20120604
  Receipt Date: 20120525
  Transmission Date: 20120825
  Serious: Yes (Hospitalization)
  Sender: FDA-Public Use
  Company Number: FR-PFIZER INC-2012126547

PATIENT
  Age: 55 Year
  Sex: Male

DRUGS (16)
  1. LASIX [Concomitant]
     Dosage: UNK
     Route: 042
     Dates: start: 20120224, end: 20120226
  2. PRIMPERAN TAB [Concomitant]
     Dosage: UNK
     Route: 042
     Dates: start: 20120224
  3. GAVISCON [Concomitant]
     Indication: GASTROINTESTINAL DISORDER
     Dosage: UNK
     Route: 048
     Dates: start: 20120227
  4. ZOFRAN [Concomitant]
     Indication: PROPHYLAXIS
     Dosage: 8 MG
     Route: 042
     Dates: start: 20120223, end: 20120225
  5. CYTARABINE [Suspect]
     Indication: ACUTE MYELOMONOCYTIC LEUKAEMIA
     Dosage: 500 MG/M2 (1 G), 1X/DAY
     Route: 042
     Dates: start: 20120223, end: 20120225
  6. NEUPOGEN [Suspect]
     Indication: ACUTE MYELOMONOCYTIC LEUKAEMIA
     Dosage: 5 UG/KG (450 UG), 1X/DAY
     Route: 042
     Dates: start: 20120223, end: 20120301
  7. PERIKABIVEN 1200 [Suspect]
     Indication: PARENTERAL NUTRITION
     Dosage: UNK
     Route: 042
     Dates: start: 20120229, end: 20120301
  8. TIORFAN [Concomitant]
     Indication: GASTROINTESTINAL DISORDER
     Dosage: UNK
     Route: 048
     Dates: start: 20120226
  9. TRAMADOL [Concomitant]
     Dosage: UNK
     Dates: start: 20120228
  10. PARACETAMOL [Concomitant]
     Dosage: UNK
     Route: 048
     Dates: start: 20120225, end: 20120226
  11. PERIFERALGAN [Concomitant]
     Dosage: UNK
     Route: 042
     Dates: start: 20120226
  12. CEFTRIAXONE [Concomitant]
     Indication: HYPERTHERMIA
     Dosage: UNK
     Dates: start: 20120228, end: 20120301
  13. ACICLOVIR [Concomitant]
     Dosage: UNK
  14. CERUBIDINE [Suspect]
     Indication: ACUTE MYELOMONOCYTIC LEUKAEMIA
     Dosage: 60 MG/M2 (120 MG), 1X/DAY
     Route: 042
     Dates: start: 20120223, end: 20120225
  15. HYDREA [Concomitant]
     Indication: ACUTE MYELOMONOCYTIC LEUKAEMIA
     Dosage: 3 G  A DAY
     Route: 048
     Dates: start: 20120206, end: 20120222
  16. FOLIC ACID [Concomitant]
     Dosage: 1 A DAY
     Route: 048
     Dates: start: 20120201

REACTIONS (3)
  - PLEURAL EFFUSION [None]
  - TRANSFUSION-RELATED ACUTE LUNG INJURY [None]
  - INTERSTITIAL LUNG DISEASE [None]
